FAERS Safety Report 25633431 (Version 1)
Quarter: 2025Q3

REPORT INFORMATION
  Report Type: Spontaneous
  Country: US (occurrence: None)
  Receive Date: 20250731
  Receipt Date: 20250731
  Transmission Date: 20251021
  Serious: Yes (unspecified)
  Sender: FDA-CTU
  Company Number: None

PATIENT
  Age: 50 Year
  Sex: Female
  Weight: 124.65 kg

DRUGS (14)
  1. ORAQIX [Suspect]
     Active Substance: LIDOCAINE\PRILOCAINE
     Indication: Product use issue
     Dates: start: 20250728, end: 20250728
  2. ATORVASTATIN [Concomitant]
     Active Substance: ATORVASTATIN
  3. ALLOPURINOL [Concomitant]
     Active Substance: ALLOPURINOL
  4. GABAPENTIN [Concomitant]
     Active Substance: GABAPENTIN
  5. ROSITARA [Concomitant]
  6. KETOCONAZOLE [Concomitant]
     Active Substance: KETOCONAZOLE
  7. CLINDAMYCIN PHOSPHATE [Concomitant]
     Active Substance: CLINDAMYCIN PHOSPHATE
  8. AZITHROMYCIN [Concomitant]
     Active Substance: AZITHROMYCIN
  9. CLA LEAN [Concomitant]
  10. STORED BELLY FAT BURNER [Concomitant]
  11. BERBERINE [Suspect]
     Active Substance: BERBERINE
  12. OREGANOL [Concomitant]
  13. MELATONIN [Concomitant]
     Active Substance: MELATONIN
  14. REDIMIND [Concomitant]

REACTIONS (5)
  - Pruritus [None]
  - Urticaria [None]
  - Pharyngeal swelling [None]
  - Tremor [None]
  - Asthma [None]

NARRATIVE: CASE EVENT DATE: 20250728
